FAERS Safety Report 22190492 (Version 1)
Quarter: 2023Q2

REPORT INFORMATION
  Report Type: Spontaneous
  Country: US (occurrence: None)
  Receive Date: 20230410
  Receipt Date: 20230410
  Transmission Date: 20230722
  Serious: Yes (Hospitalization)
  Sender: FDA-Public Use
  Company Number: US-ROCHE-3323474

PATIENT
  Sex: Female

DRUGS (1)
  1. LUNSUMIO [Suspect]
     Active Substance: MOSUNETUZUMAB-AXGB
     Indication: Product used for unknown indication
     Route: 065
     Dates: start: 20230330

REACTIONS (1)
  - Cytokine release syndrome [Recovering/Resolving]

NARRATIVE: CASE EVENT DATE: 20230330
